FAERS Safety Report 20584527 (Version 1)
Quarter: 2022Q1

REPORT INFORMATION
  Report Type: Spontaneous
  Country: DE (occurrence: DE)
  Receive Date: 20220311
  Receipt Date: 20220311
  Transmission Date: 20220423
  Serious: Yes (Other)
  Sender: FDA-Public Use
  Company Number: DE-NOVARTISPH-NVSC2022DE052062

PATIENT
  Age: 1 Day
  Sex: Male
  Weight: 2.45 kg

DRUGS (3)
  1. CITALOPRAM [Suspect]
     Active Substance: CITALOPRAM HYDROBROMIDE
     Indication: Foetal exposure during pregnancy
     Dosage: UNK (MATERNAL DOSE: 15 MG, QD, 0. - 39.2. GESTATIONAL WEEK, 15 MG/D)
     Route: 064
     Dates: start: 20201114, end: 20210816
  2. METOPROLOL [Suspect]
     Active Substance: METOPROLOL
     Indication: Foetal exposure during pregnancy
     Dosage: UNK (MATERNAL DOSE: 75 MG, QD, 0. - 31.2. GESTATIONAL WEEK
     Route: 064
     Dates: start: 20201114, end: 20210621
  3. METHYLDOPA [Concomitant]
     Active Substance: METHYLDOPA
     Indication: Foetal exposure during pregnancy
     Dosage: UNK (MATERNAL DOSE: 625 MG, QD, 31.2. - 39.2. GESTATIONAL WEEK)
     Route: 064
     Dates: start: 20210621, end: 20210816

REACTIONS (4)
  - Temperature regulation disorder [Recovered/Resolved]
  - Hypoglycaemia neonatal [Recovered/Resolved]
  - Small for dates baby [Recovered/Resolved]
  - Foetal exposure during pregnancy [Unknown]

NARRATIVE: CASE EVENT DATE: 20210801
